FAERS Safety Report 10100272 (Version 2)
Quarter: 2014Q2

REPORT INFORMATION
  Report Type: Spontaneous
  Country: US (occurrence: US)
  Receive Date: 20140423
  Receipt Date: 20140423
  Transmission Date: 20141212
  Serious: No
  Sender: FDA-Public Use
  Company Number: US-GILEAD-2013-0077372

PATIENT
  Sex: Female

DRUGS (4)
  1. LETAIRIS [Suspect]
     Indication: PULMONARY ARTERIAL HYPERTENSION
     Dosage: 10 MG, QD
     Dates: start: 20080328
  2. TYVASO [Concomitant]
  3. COUMADIN                           /00014802/ [Concomitant]
  4. REVATIO [Concomitant]

REACTIONS (4)
  - Headache [Recovered/Resolved]
  - Bone pain [Unknown]
  - Throat irritation [Unknown]
  - Diarrhoea [Recovered/Resolved]
